FAERS Safety Report 11720013 (Version 1)
Quarter: 2015Q4

REPORT INFORMATION
  Report Type: Spontaneous
  Country: US (occurrence: US)
  Receive Date: 20151110
  Receipt Date: 20151110
  Transmission Date: 20160304
  Serious: No
  Sender: FDA-Public Use
  Company Number: US-PERRIGO-15US004533

PATIENT
  Sex: Male
  Weight: 72.56 kg

DRUGS (7)
  1. CIMETIDINE  200 MG 022 [Suspect]
     Active Substance: CIMETIDINE
     Indication: DYSPEPSIA
     Dosage: 200 MG, SINGLE
     Route: 048
     Dates: start: 20150416, end: 20150416
  2. DRUGS USED IN BENIGN PROSTATIC HYPERTROPHY [Concomitant]
     Indication: PROSTATOMEGALY
     Dosage: UNK
     Route: 065
     Dates: start: 2010
  3. CIMETIDINE  200 MG 022 [Suspect]
     Active Substance: CIMETIDINE
     Dosage: 200 MG, SINGLE
     Route: 048
     Dates: start: 20150427, end: 20150427
  4. ANXIOLYTICS [Concomitant]
     Active Substance: UNSPECIFIED INGREDIENT
     Indication: ANXIETY
     Dosage: UNK
     Route: 065
     Dates: start: 2010
  5. OTHER THROAT PREPARATIONS [Concomitant]
     Indication: OROPHARYNGEAL PAIN
     Dosage: UNK
     Route: 065
     Dates: start: 2010
  6. LASIX [Concomitant]
     Active Substance: FUROSEMIDE
     Indication: FLUID RETENTION
     Dosage: UNK
     Route: 065
     Dates: start: 2010
  7. ANTIHYPERTENSIVES [Concomitant]
     Active Substance: UNSPECIFIED INGREDIENT
     Indication: HYPERTENSION
     Dosage: UNK
     Route: 065
     Dates: start: 2010

REACTIONS (1)
  - Drug ineffective [Unknown]

NARRATIVE: CASE EVENT DATE: 20150416
